FAERS Safety Report 5909478-5 (Version None)
Quarter: 2008Q4

REPORT INFORMATION
  Report Type: 
  Country: None (occurrence: None)
  Receive Date: 20081001
  Receipt Date: 20080717
  Transmission Date: 20090506
  Serious: Yes (Hospitalization, Disabling)
  Sender: FDA-Public Use
  Company Number: 2008EU001454

PATIENT
  Age: 26 Year
  Sex: Male

DRUGS (10)
  1. PROGRAF [Suspect]
     Indication: LUNG TRANSPLANT
     Dosage: 4.5 MG, BID, ORAL
     Route: 048
     Dates: start: 19980806, end: 20050708
  2. CELLCEPT [Concomitant]
  3. ACUPAN [Concomitant]
  4. CREON [Concomitant]
  5. LEXOMIL (BROMAZEPAM) [Concomitant]
  6. MAALOX (ALUMINIUM HYDROXIDE GEL) [Concomitant]
  7. MUCOMYST (ACETYLCYSTEINE SODIUM) [Concomitant]
  8. NITROGLYCERIN [Concomitant]
  9. PRAVASTATIN [Concomitant]
  10. CALTRATE [Concomitant]

REACTIONS (18)
  - ABDOMINAL DISTENSION [None]
  - COMPUTERISED TOMOGRAM ABDOMEN ABNORMAL [None]
  - DEPRESSION [None]
  - HAEMODIALYSIS [None]
  - HEART RATE INCREASED [None]
  - HYPERPHOSPHATAEMIA [None]
  - HYPERTENSION [None]
  - HYPOXIA [None]
  - ILEUS [None]
  - ILL-DEFINED DISORDER [None]
  - MYALGIA [None]
  - OROPHARYNGEAL PAIN [None]
  - POST PROCEDURAL HAEMATOMA [None]
  - RENAL FAILURE ACUTE [None]
  - RENAL TRANSPLANT [None]
  - RETROPERITONEAL HAEMATOMA [None]
  - THROMBOTIC MICROANGIOPATHY [None]
  - TREATMENT NONCOMPLIANCE [None]
